FAERS Safety Report 25064807 (Version 2)
Quarter: 2025Q2

REPORT INFORMATION
  Report Type: Spontaneous
  Country: JP (occurrence: JP)
  Receive Date: 20250311
  Receipt Date: 20250423
  Transmission Date: 20250717
  Serious: Yes (Other)
  Sender: ELI LILLY AND COMPANY
  Company Number: JP-ELI_LILLY_AND_COMPANY-JP202501006077

PATIENT
  Age: 57 Year
  Sex: Female
  Weight: 97 kg

DRUGS (10)
  1. MOUNJARO [Suspect]
     Active Substance: TIRZEPATIDE
     Indication: Type 2 diabetes mellitus
     Dosage: 2.5 MG, WEEKLY (1/W)
     Route: 058
     Dates: start: 20241102
  2. MOUNJARO [Suspect]
     Active Substance: TIRZEPATIDE
     Dosage: 5 MG, WEEKLY (1/W)
     Route: 058
     Dates: start: 20241130, end: 20241203
  3. BENIDIPINE HYDROCHLORIDE [Concomitant]
     Active Substance: BENIDIPINE HYDROCHLORIDE
     Indication: Hypertension
     Dosage: 4 MG, BID
     Route: 048
  4. NICORANDIL [Concomitant]
     Active Substance: NICORANDIL
     Indication: Prinzmetal angina
     Dosage: 5 MG, BID
     Route: 048
  5. OLMESARTAN [Concomitant]
     Active Substance: OLMESARTAN
     Indication: Hypertension
     Dosage: 5 MG, DAILY
     Route: 048
  6. VONOPRAZAN FUMARATE [Concomitant]
     Active Substance: VONOPRAZAN FUMARATE
     Indication: Gastrooesophageal reflux disease
     Dosage: 20 MG, DAILY
     Route: 048
  7. ATORVASTATIN [Concomitant]
     Active Substance: ATORVASTATIN
     Indication: Dyslipidaemia
     Dosage: 5 MG, DAILY
     Route: 048
  8. ALESION [Concomitant]
     Active Substance: EPINASTINE HYDROCHLORIDE
     Indication: Rhinitis allergic
     Dosage: 20 MG, DAILY
     Route: 048
  9. TIZANIDINE [Concomitant]
     Active Substance: TIZANIDINE
     Dosage: 1 MG, TID
     Route: 048
  10. NITROGLYCERIN [Concomitant]
     Active Substance: NITROGLYCERIN
     Indication: Prinzmetal angina
     Route: 060

REACTIONS (10)
  - Hepatic function abnormal [Recovered/Resolved]
  - Myalgia [Recovered/Resolved]
  - Pancytopenia [Recovered/Resolved]
  - Generalised oedema [Unknown]
  - Pyrexia [Recovered/Resolved]
  - Nausea [Recovered/Resolved]
  - Face oedema [Recovered/Resolved]
  - Hypersensitivity [Unknown]
  - Urticaria [Unknown]
  - Hiatus hernia [Unknown]

NARRATIVE: CASE EVENT DATE: 20241202
